FAERS Safety Report 22526332 (Version 1)
Quarter: 2023Q2

REPORT INFORMATION
  Report Type: Spontaneous
  Country: US (occurrence: None)
  Receive Date: 20230605
  Receipt Date: 20230605
  Transmission Date: 20230722
  Serious: Yes (Death)
  Sender: FDA-Public Use
  Company Number: None

PATIENT
  Age: 40 Year
  Sex: Male

DRUGS (4)
  1. ETRAVIRINE [Suspect]
     Active Substance: ETRAVIRINE
     Indication: HIV infection
     Dosage: 200MG BID ORAL
     Route: 048
     Dates: start: 20220610
  2. EMTRICITABINE/TENOF [Concomitant]
  3. TIVICAY [Concomitant]
     Active Substance: DOLUTEGRAVIR SODIUM
  4. PYRIMETHAMINE [Concomitant]
     Active Substance: PYRIMETHAMINE

REACTIONS (1)
  - Death [None]
